FAERS Safety Report 9696927 (Version 2)
Quarter: 2013Q4

REPORT INFORMATION
  Report Type: Spontaneous
  Country: US (occurrence: US)
  Receive Date: 20131119
  Receipt Date: 20131119
  Transmission Date: 20140711
  Serious: No
  Sender: FDA-Public Use
  Company Number: US-GILEAD-2007-0013954

PATIENT
  Age: 54 Year
  Sex: Male
  Weight: 70.31 kg

DRUGS (7)
  1. LETAIRIS [Suspect]
     Indication: PULMONARY ARTERIAL HYPERTENSION
     Route: 048
     Dates: start: 20070823
  2. GABAPENTIN [Concomitant]
     Indication: CONVULSION
     Route: 048
  3. SPIRONOLACTONE [Concomitant]
     Indication: FLUID RETENTION
     Route: 048
  4. CARDIZEM [Concomitant]
     Indication: ESSENTIAL HYPERTENSION
     Route: 048
  5. COUMADIN [Concomitant]
     Indication: ANTICOAGULANT THERAPY
     Route: 048
  6. LASIX [Concomitant]
     Indication: PULMONARY ARTERIAL HYPERTENSION
     Route: 048
  7. MULTIVITAMINS [Concomitant]
     Indication: SUPPLEMENTATION THERAPY
     Route: 048

REACTIONS (1)
  - Oedema peripheral [Not Recovered/Not Resolved]
